FAERS Safety Report 24806251 (Version 1)
Quarter: 2025Q1

REPORT INFORMATION
  Report Type: Spontaneous
  Country: US (occurrence: US)
  Receive Date: 20250103
  Receipt Date: 20250103
  Transmission Date: 20250409
  Serious: No
  Sender: ALEXION PHARMACEUTICALS
  Company Number: US-009507513-2410USA004375

PATIENT
  Age: 33 Year

DRUGS (4)
  1. LYNPARZA [Suspect]
     Active Substance: OLAPARIB
     Indication: Breast cancer
     Dosage: 300 MG, TWICE DAILY
  2. LYNPARZA [Suspect]
     Active Substance: OLAPARIB
     Dosage: 300 MG, TWICE DAILY
     Route: 048
  3. LYNPARZA [Suspect]
     Active Substance: OLAPARIB
     Dosage: 300 MG, TWICE DAILY
  4. LYNPARZA [Suspect]
     Active Substance: OLAPARIB
     Dosage: 300 MG, TWICE DAILY
     Route: 048

REACTIONS (3)
  - Bone pain [Recovered/Resolved]
  - Fatigue [Not Recovered/Not Resolved]
  - Nausea [Not Recovered/Not Resolved]
